FAERS Safety Report 14564176 (Version 2)
Quarter: 2018Q1

REPORT INFORMATION
  Report Type: Spontaneous
  Country: US (occurrence: US)
  Receive Date: 20180222
  Receipt Date: 20180306
  Transmission Date: 20180509
  Serious: Yes (Other)
  Sender: FDA-Public Use
  Company Number: CH-ALLERGAN-1809415US

PATIENT
  Age: 13 Year
  Sex: Female
  Weight: 47 kg

DRUGS (17)
  1. FLUTICASONE. [Concomitant]
     Active Substance: FLUTICASONE
  2. IPRATROPIUM [Concomitant]
     Active Substance: IPRATROPIUM
  3. HYPERTONIC SALINE SOLUTION [Concomitant]
     Active Substance: SODIUM CHLORIDE
  4. ACETYLCYSTEINE. [Concomitant]
     Active Substance: ACETYLCYSTEINE
  5. OMEPRAZOLE. [Concomitant]
     Active Substance: OMEPRAZOLE
  6. IBUPROFEN. [Concomitant]
     Active Substance: IBUPROFEN
  7. CEFTAROLINE FOSAMIL - BP [Suspect]
     Active Substance: CEFTAROLINE FOSAMIL
     Indication: STENOTROPHOMONAS INFECTION
  8. MONTELUKAST [Concomitant]
     Active Substance: MONTELUKAST SODIUM
  9. AZITHROMYCIN ANHYDROUS. [Concomitant]
     Active Substance: AZITHROMYCIN ANHYDROUS
  10. PANCRELIPASE. [Concomitant]
     Active Substance: PANCRELIPASE
  11. CEFTAROLINE FOSAMIL - BP [Suspect]
     Active Substance: CEFTAROLINE FOSAMIL
     Indication: STAPHYLOCOCCAL INFECTION
     Dosage: 400 MG, TID
     Route: 042
  12. ALBUTEROL. [Concomitant]
     Active Substance: ALBUTEROL
  13. DORNASE ALFA. [Concomitant]
     Active Substance: DORNASE ALFA
  14. GENTAMICIN. [Concomitant]
     Active Substance: GENTAMICIN
  15. COLISTIMETHATE [Concomitant]
     Active Substance: COLISTIMETHATE SODIUM
  16. CHOLECALCIFEROL [Concomitant]
     Active Substance: CHOLECALCIFEROL
  17. CLONAZEPAM. [Concomitant]
     Active Substance: CLONAZEPAM

REACTIONS (4)
  - Febrile neutropenia [Recovered/Resolved]
  - Agranulocytosis [Recovered/Resolved]
  - Rash papular [Unknown]
  - Rash erythematous [Unknown]
